FAERS Safety Report 6154648-7 (Version None)
Quarter: 2009Q2

REPORT INFORMATION
  Report Type: 
  Country: None (occurrence: None)
  Receive Date: 20090414
  Receipt Date: 20090408
  Transmission Date: 20091009
  Serious: Yes (Other)
  Sender: FDA-Public Use
  Company Number: US-ELI_LILLY_AND_COMPANY-US200904001775

PATIENT
  Sex: Female

DRUGS (14)
  1. BYETTA [Suspect]
     Indication: TYPE 2 DIABETES MELLITUS
     Dosage: 5 UG, 2/D
     Dates: start: 20090310, end: 20090317
  2. GLIPIZIDE [Concomitant]
     Indication: TYPE 2 DIABETES MELLITUS
     Dosage: 10 MG, 2/D
     Route: 048
  3. METFORMIN HCL [Concomitant]
     Indication: TYPE 2 DIABETES MELLITUS
     Dosage: 1000 MG, 2/D
     Route: 048
  4. DIOVAN [Concomitant]
     Indication: BLOOD PRESSURE
     Dosage: 80 MG, DAILY (1/D)
     Route: 048
  5. LANOXIN [Concomitant]
     Indication: CEREBROVASCULAR ACCIDENT
     Dosage: 2.5 MG, DAILY (1/D)
     Route: 048
  6. ZOCOR [Concomitant]
     Indication: BLOOD CHOLESTEROL INCREASED
     Dosage: 40 MG, DAILY (1/D)
     Route: 048
  7. CELEXA [Concomitant]
     Indication: DEPRESSION
     Dosage: 40 MG, DAILY (1/D)
     Route: 048
  8. OMEPRAZOLE [Concomitant]
     Indication: GASTROOESOPHAGEAL REFLUX DISEASE
     Dosage: 20 MG, DAILY (1/D)
     Route: 048
  9. FOLIC ACID [Concomitant]
     Indication: SUPPLEMENTATION THERAPY
     Dosage: 800 MG, DAILY (1/D)
     Route: 048
  10. COUMADIN [Concomitant]
     Dosage: 7.5 MG, 3/W
     Route: 048
  11. COUMADIN [Concomitant]
     Dosage: 5 MG, 4/W
  12. COUMADIN [Concomitant]
     Dosage: 7.5 MG, 5/W
  13. COUMADIN [Concomitant]
     Dosage: 5 MG, 2/W
  14. TRIAMTERENE [Concomitant]
     Indication: POLYURIA
     Dosage: UNK, DAILY (1/D)
     Route: 048

REACTIONS (1)
  - PANCREATITIS [None]
